FAERS Safety Report 20027341 (Version 1)
Quarter: 2021Q4

REPORT INFORMATION
  Report Type: Spontaneous
  Country: CN (occurrence: CN)
  Receive Date: 20211103
  Receipt Date: 20211103
  Transmission Date: 20220303
  Serious: Yes (Other)
  Sender: FDA-Public Use
  Company Number: CN-ABBVIE-21K-035-4144099-00

PATIENT
  Age: 47 Year
  Sex: Female
  Weight: 62 kg

DRUGS (4)
  1. VALPROATE SODIUM [Suspect]
     Active Substance: VALPROATE SODIUM
     Indication: Delusional disorder, unspecified type
     Route: 048
     Dates: start: 20190823, end: 20190827
  2. QUETIAPINE FUMARATE [Suspect]
     Active Substance: QUETIAPINE FUMARATE
     Indication: Delusional disorder, unspecified type
     Route: 048
     Dates: start: 20190817, end: 20190827
  3. QUETIAPINE FUMARATE [Suspect]
     Active Substance: QUETIAPINE FUMARATE
     Route: 048
     Dates: start: 20190823, end: 20190827
  4. HALOPERIDOL [Suspect]
     Active Substance: HALOPERIDOL
     Indication: Delusional disorder, unspecified type
     Route: 030
     Dates: start: 20190823, end: 20190825

REACTIONS (2)
  - Electrocardiogram QT prolonged [Unknown]
  - Tachycardia [Unknown]

NARRATIVE: CASE EVENT DATE: 20190825
